FAERS Safety Report 21389950 (Version 1)
Quarter: 2022Q3

REPORT INFORMATION
  Report Type: Report from Study
  Country: CH (occurrence: CH)
  Receive Date: 20220929
  Receipt Date: 20220929
  Transmission Date: 20221027
  Serious: Yes (Death)
  Sender: FDA-Public Use
  Company Number: CH-NOVARTISPH-NVSC2022CH218921

PATIENT
  Age: 74 Year
  Sex: Male

DRUGS (1)
  1. LUTETIUM LU-177 VIPIVOTIDE TETRAXETAN [Suspect]
     Active Substance: LUTETIUM LU-177 VIPIVOTIDE TETRAXETAN
     Indication: Hormone-refractory prostate cancer
     Dosage: 7400 MBQ, 6QW
     Route: 042
     Dates: start: 20220419, end: 20220726

REACTIONS (1)
  - Death [Fatal]

NARRATIVE: CASE EVENT DATE: 20220926
